FAERS Safety Report 18404697 (Version 1)
Quarter: 2020Q4

REPORT INFORMATION
  Report Type: Spontaneous
  Country: TR (occurrence: TR)
  Receive Date: 20201020
  Receipt Date: 20201020
  Transmission Date: 20210114
  Serious: Yes (Other)
  Sender: FDA-Public Use
  Company Number: TR-BAYER-2020-224188

PATIENT
  Age: 89 Year
  Sex: Female

DRUGS (1)
  1. ADEMPAS [Suspect]
     Active Substance: RIOCIGUAT
     Dosage: 2.5 MG
     Dates: start: 2020, end: 2020

REACTIONS (3)
  - Blood creatinine increased [None]
  - Renal failure [None]
  - Bronchial carcinoma [None]

NARRATIVE: CASE EVENT DATE: 2020
